FAERS Safety Report 11734782 (Version 2)
Quarter: 2016Q1

REPORT INFORMATION
  Report Type: Spontaneous
  Country: US (occurrence: US)
  Receive Date: 20151113
  Receipt Date: 20160125
  Transmission Date: 20160525
  Serious: No
  Sender: FDA-Public Use
  Company Number: US-PFIZER INC-2015385444

PATIENT
  Age: 70 Year
  Sex: Female

DRUGS (4)
  1. DIAZEPAM. [Suspect]
     Active Substance: DIAZEPAM
     Indication: MENIERE^S DISEASE
     Dosage: 2.5 MG, 3X/DAY
     Dates: start: 1972
  2. VALIUM [Concomitant]
     Active Substance: DIAZEPAM
     Indication: MENIERE^S DISEASE
     Dosage: 2.5 MG, 3X/DAY
  3. DRAMAMINE [Concomitant]
     Active Substance: DIMENHYDRINATE
     Indication: MIGRAINE
  4. MEDROXYPROGESTERONE ACETATE. [Suspect]
     Active Substance: MEDROXYPROGESTERONE ACETATE
     Indication: MENOPAUSAL SYMPTOMS
     Dosage: 2.5 MG, 1X/DAY

REACTIONS (2)
  - Drug intolerance [Recovered/Resolved]
  - Drug effect incomplete [Not Recovered/Not Resolved]
